FAERS Safety Report 24609010 (Version 2)
Quarter: 2025Q3

REPORT INFORMATION
  Report Type: Spontaneous
  Country: US (occurrence: US)
  Receive Date: 20241112
  Receipt Date: 20250908
  Transmission Date: 20251021
  Serious: Yes (Other)
  Sender: PFIZER
  Company Number: US-PFIZER INC-PV202400145134

PATIENT
  Age: 73 Year
  Sex: Male
  Weight: 101.59 kg

DRUGS (3)
  1. IBRANCE [Suspect]
     Active Substance: PALBOCICLIB
     Indication: Breast cancer female
     Route: 048
     Dates: start: 202404
  2. ANASTROZOLE [Suspect]
     Active Substance: ANASTROZOLE
     Dates: start: 202404
  3. LUPRON [Suspect]
     Active Substance: LEUPROLIDE ACETATE
     Dates: start: 202404

REACTIONS (3)
  - Pneumonitis [Unknown]
  - Lymphadenopathy [Unknown]
  - Lung disorder [Unknown]
